FAERS Safety Report 7950375-1 (Version None)
Quarter: 2011Q4

REPORT INFORMATION
  Report Type: 
  Country: None (occurrence: None)
  Receive Date: 20111130
  Receipt Date: 20111118
  Transmission Date: 20120403
  Serious: Yes (Hospitalization)
  Sender: FDA-Public Use
  Company Number: US-PFIZER INC-2011265010

PATIENT
  Sex: Female
  Weight: 63.6 kg

DRUGS (8)
  1. PEPCID [Concomitant]
     Dosage: UNK
     Route: 048
     Dates: start: 20110419
  2. POTASSIUM [Concomitant]
     Dosage: UNK
     Route: 042
     Dates: start: 20111014, end: 20111014
  3. LIPITOR [Concomitant]
     Indication: HYPERLIPIDAEMIA
     Dosage: UNK
     Route: 048
     Dates: start: 20110419
  4. CRIZOTINIB [Suspect]
     Indication: NON-SMALL CELL LUNG CANCER
     Dosage: 250 MG, 2X/DAY
     Route: 048
     Dates: start: 20110628, end: 20111024
  5. WARFARIN SODIUM [Concomitant]
     Dosage: UNK
     Dates: start: 20110525
  6. AMOXICILLIN [Concomitant]
     Dosage: UNK
     Route: 048
     Dates: start: 20111012, end: 20111022
  7. LOPRESSOR [Concomitant]
     Dosage: UNK
     Route: 048
     Dates: start: 20110419
  8. LASIX [Concomitant]
     Dosage: UNK
     Route: 048
     Dates: start: 20110707

REACTIONS (4)
  - HYPOKALAEMIA [None]
  - ATRIAL FIBRILLATION [None]
  - RESPIRATORY FAILURE [None]
  - HYPOMAGNESAEMIA [None]
